FAERS Safety Report 6600243-2 (Version None)
Quarter: 2010Q1

REPORT INFORMATION
  Report Type: 
  Country: None (occurrence: None)
  Receive Date: 20100224
  Receipt Date: 20100212
  Transmission Date: 20100710
  Serious: Yes (Other)
  Sender: FDA-Public Use
  Company Number: JP-PFIZER INC-2009314460

PATIENT
  Age: 79 Year
  Sex: Male

DRUGS (4)
  1. UNASYN [Suspect]
     Indication: ENTERITIS INFECTIOUS
     Dosage: 1.5 G, 2X/DAY
     Route: 042
     Dates: start: 20091218, end: 20091218
  2. UNASYN [Suspect]
     Indication: PYELONEPHRITIS ACUTE
     Dosage: 3 G, 2X/DAY
     Route: 042
     Dates: start: 20091219, end: 20091219
  3. UNASYN [Suspect]
     Dosage: 1.5 G, 2X/DAY
     Route: 042
     Dates: start: 20091219, end: 20091223
  4. VOLTAREN [Concomitant]

REACTIONS (1)
  - RENAL IMPAIRMENT [None]
